FAERS Safety Report 4991104-3 (Version None)
Quarter: 2006Q1

REPORT INFORMATION
  Report Type: 
  Country: None (occurrence: None)
  Receive Date: 20060314
  Receipt Date: 20060206
  Transmission Date: 20060701
  Serious: No
  Sender: FDA-Public Use
  Company Number: 2006-00259

PATIENT
  Age: 72 Year
  Sex: Female
  Weight: 62.6 kg

DRUGS (7)
  1. VELCADE [Suspect]
     Indication: MANTLE CELL LYMPHOMA
     Dates: start: 20050901, end: 20051222
  2. CYTOXAN [Suspect]
     Indication: MANTLE CELL LYMPHOMA
     Dates: start: 20050901, end: 20051222
  3. RITUXAN [Suspect]
     Indication: MANTLE CELL LYMPHOMA
     Dates: start: 20050901, end: 20051222
  4. VINCRISTINE [Suspect]
     Indication: MANTLE CELL LYMPHOMA
     Dates: start: 20050901, end: 20051222
  5. LOPRESSOR [Concomitant]
  6. VERAPAMIL [Concomitant]
  7. ALLOPURINOL [Concomitant]

REACTIONS (3)
  - ANAEMIA [None]
  - NEUROPATHY PERIPHERAL [None]
  - PERIPHERAL COLDNESS [None]
